FAERS Safety Report 20539531 (Version 1)
Quarter: 2022Q1

REPORT INFORMATION
  Report Type: Report from Study
  Country: TR (occurrence: TR)
  Receive Date: 20220302
  Receipt Date: 20220302
  Transmission Date: 20220423
  Serious: Yes (Other)
  Sender: FDA-Public Use
  Company Number: TR-JNJFOC-20211109409

PATIENT

DRUGS (2)
  1. REMICADE [Suspect]
     Active Substance: INFLIXIMAB
     Indication: Takayasu^s arteritis
     Route: 042
  2. STELARA [Suspect]
     Active Substance: USTEKINUMAB
     Indication: Takayasu^s arteritis
     Route: 058

REACTIONS (8)
  - Cardiac failure [Unknown]
  - Infection [Unknown]
  - Hypersensitivity [Unknown]
  - Treatment noncompliance [Unknown]
  - Proteinuria [Unknown]
  - Exposure during pregnancy [Unknown]
  - Off label use [Unknown]
  - Product use in unapproved indication [Unknown]
